FAERS Safety Report 24168951 (Version 3)
Quarter: 2025Q1

REPORT INFORMATION
  Report Type: Spontaneous
  Country: US (occurrence: US)
  Receive Date: 20240802
  Receipt Date: 20250116
  Transmission Date: 20250409
  Serious: No
  Sender: PFIZER
  Company Number: US-PFIZER INC-PV202400099724

PATIENT
  Age: 45 Year
  Sex: Female
  Weight: 102.9 kg

DRUGS (3)
  1. NIFEDIPINE [Suspect]
     Active Substance: NIFEDIPINE
     Indication: Blood pressure management
  2. TARPEYO [Suspect]
     Active Substance: BUDESONIDE
     Indication: IgA nephropathy
     Dosage: 16 MG, 1X/DAY
     Route: 048
     Dates: start: 20240312
  3. CHLORTHALIDONE [Suspect]
     Active Substance: CHLORTHALIDONE
     Indication: Blood pressure management

REACTIONS (4)
  - Illness [Unknown]
  - Migraine [Unknown]
  - Musculoskeletal stiffness [Unknown]
  - Off label use [Unknown]
